FAERS Safety Report 15903857 (Version 1)
Quarter: 2019Q1

REPORT INFORMATION
  Report Type: Spontaneous
  Country: FR (occurrence: FR)
  Receive Date: 20190204
  Receipt Date: 20190204
  Transmission Date: 20190417
  Serious: Yes (Life-Threatening, Other)
  Sender: FDA-Public Use
  Company Number: FR-AUROBINDO-AUR-APL-2019-006096

PATIENT

DRUGS (7)
  1. QUETIAPINE. [Suspect]
     Active Substance: QUETIAPINE
     Indication: PRODUCT USED FOR UNKNOWN INDICATION
     Dosage: 7200 MILLIGRAM ONE TOTAL
     Route: 048
     Dates: start: 20190114, end: 20190114
  2. SERTRALINE [Suspect]
     Active Substance: SERTRALINE HYDROCHLORIDE
     Indication: PRODUCT USED FOR UNKNOWN INDICATION
     Dosage: 350 MILLIGRAM ONE TOTAL
     Route: 048
     Dates: start: 20190114, end: 20190114
  3. PARACETAMOL [Suspect]
     Active Substance: ACETAMINOPHEN
     Indication: PRODUCT USED FOR UNKNOWN INDICATION
     Dosage: 7 GRAM ONE TOTAL
     Route: 048
     Dates: start: 20190114, end: 20190114
  4. SERESTA [Suspect]
     Active Substance: OXAZEPAM
     Indication: PRODUCT USED FOR UNKNOWN INDICATION
     Dosage: 20 DOSAGE FORM ONE TOTAL
     Route: 048
     Dates: start: 20190114, end: 20190114
  5. TERALITHE [Suspect]
     Active Substance: LITHIUM CARBONATE
     Indication: PRODUCT USED FOR UNKNOWN INDICATION
     Dosage: UNK
     Route: 048
     Dates: start: 20190114, end: 20190114
  6. ZOPICLONE [Suspect]
     Active Substance: ZOPICLONE
     Indication: PRODUCT USED FOR UNKNOWN INDICATION
     Dosage: 202.5 MILLIGRAM ONE TOTAL
     Route: 048
     Dates: start: 20190114, end: 20190114
  7. THERALENE [Suspect]
     Active Substance: TRIMEPRAZINE
     Indication: PRODUCT USED FOR UNKNOWN INDICATION
     Dosage: 25 DOSAGE FORM ONE TOTAL
     Route: 048
     Dates: start: 20190114, end: 20190114

REACTIONS (5)
  - Electrocardiogram QT prolonged [Recovered/Resolved]
  - Pneumonia aspiration [Recovering/Resolving]
  - Poisoning deliberate [Recovered/Resolved]
  - Coma [Recovering/Resolving]
  - Acute kidney injury [Recovered/Resolved]

NARRATIVE: CASE EVENT DATE: 20190114
